FAERS Safety Report 25024172 (Version 8)
Quarter: 2025Q2

REPORT INFORMATION
  Report Type: Spontaneous
  Country: PR (occurrence: PR)
  Receive Date: 20250228
  Receipt Date: 20250630
  Transmission Date: 20250716
  Serious: No
  Sender: PFIZER
  Company Number: PR-PFIZER INC-202500040589

PATIENT
  Age: 8 Year
  Sex: Male

DRUGS (2)
  1. GENOTROPIN [Suspect]
     Active Substance: SOMATROPIN
     Dates: start: 202501
  2. GENOTROPIN [Suspect]
     Active Substance: SOMATROPIN
     Dosage: 0.8 MG DAILY, 7 DAYS/WEEK
     Dates: start: 202502

REACTIONS (5)
  - Drug dose omission by device [Unknown]
  - Device material issue [Unknown]
  - Device physical property issue [Unknown]
  - Device breakage [Unknown]
  - Device leakage [Unknown]

NARRATIVE: CASE EVENT DATE: 20250101
